FAERS Safety Report 5541790-4 (Version None)
Quarter: 2007Q4

REPORT INFORMATION
  Report Type: 
  Country: None (occurrence: None)
  Receive Date: 20071129
  Receipt Date: 20070717
  Transmission Date: 20080405
  Serious: Yes (Other)
  Sender: FDA-Public Use
  Company Number: US200707004470

PATIENT
  Age: 35 Year
  Sex: Female

DRUGS (1)
  1. ZYPREXA ZYDIS [Suspect]
     Indication: BORDERLINE PERSONALITY DISORDER
     Dosage: 15 MG ; 210 MG
     Dates: start: 20070717, end: 20070717

REACTIONS (1)
  - INTENTIONAL OVERDOSE [None]
